FAERS Safety Report 4707186-X (Version None)
Quarter: 2005Q3

REPORT INFORMATION
  Report Type: 
  Country: None (occurrence: None)
  Receive Date: 20050701
  Receipt Date: 20050627
  Transmission Date: 20060218
  Serious: Yes (Hospitalization)
  Sender: FDA-Public Use
  Company Number: MESA 2005-021

PATIENT
  Age: 37 Year
  Sex: Female

DRUGS (5)
  1. MESALAMINE SALOFALK [Suspect]
     Indication: CROHN'S DISEASE
     Dosage: 7 G PO (3G) AND RECTAL (4G)
     Dates: start: 20050622, end: 20050625
  2. CONRACEPTIVE [Concomitant]
  3. PREVACID [Concomitant]
  4. FLOVENT [Concomitant]
  5. SALBUTAMOL [Concomitant]

REACTIONS (5)
  - BACK PAIN [None]
  - CEREBROVASCULAR ACCIDENT [None]
  - DIZZINESS [None]
  - HEADACHE [None]
  - NECK PAIN [None]
